FAERS Safety Report 5021443-1 (Version None)
Quarter: 2006Q2

REPORT INFORMATION
  Report Type: 
  Country: None (occurrence: None)
  Receive Date: 20060605
  Receipt Date: 20060518
  Transmission Date: 20061013
  Serious: Yes (Hospitalization, Other)
  Sender: FDA-Public Use
  Company Number: US-2006-012157

PATIENT
  Age: 48 Year
  Sex: Male

DRUGS (1)
  1. BETASERON [Suspect]
     Indication: MULTIPLE SCLEROSIS
     Dosage: 8 MIU, EVERY 2D, SUBCUTANEOUS
     Route: 058
     Dates: start: 19960201

REACTIONS (8)
  - BLOOD PRESSURE DIASTOLIC DECREASED [None]
  - BODY TEMPERATURE DECREASED [None]
  - BODY TEMPERATURE INCREASED [None]
  - BRAIN NEOPLASM [None]
  - CONVULSION [None]
  - FEELING ABNORMAL [None]
  - LIVER DISORDER [None]
  - WHITE BLOOD CELL COUNT DECREASED [None]
